FAERS Safety Report 15892813 (Version 1)
Quarter: 2019Q1

REPORT INFORMATION
  Report Type: Spontaneous
  Country: PL (occurrence: PL)
  Receive Date: 20190130
  Receipt Date: 20190130
  Transmission Date: 20190417
  Serious: No
  Sender: FDA-Public Use
  Company Number: PL-IPSEN-CABO-18016668

PATIENT

DRUGS (1)
  1. CABOMETYX [Suspect]
     Active Substance: CABOZANTINIB S-MALATE
     Indication: PRODUCT USED FOR UNKNOWN INDICATION
     Dosage: 60 MG, UNK

REACTIONS (8)
  - Palmar-plantar erythrodysaesthesia syndrome [Unknown]
  - Diarrhoea [Unknown]
  - Aspartate aminotransferase increased [Unknown]
  - Hypothyroidism [Unknown]
  - Thrombocytopenia [Unknown]
  - Alanine aminotransferase increased [Unknown]
  - Asthenia [Unknown]
  - Neurotoxicity [Unknown]
